FAERS Safety Report 14878492 (Version 1)
Quarter: 2018Q2

REPORT INFORMATION
  Report Type: Report from Study
  Country: PK (occurrence: PK)
  Receive Date: 20180511
  Receipt Date: 20180511
  Transmission Date: 20180711
  Serious: Yes (Death, Life-Threatening)
  Sender: FDA-Public Use
  Company Number: PK-ROCHE-2119673

PATIENT
  Age: 39 Year
  Sex: Female

DRUGS (1)
  1. HERCEPTIN [Suspect]
     Active Substance: TRASTUZUMAB
     Indication: BREAST CANCER
     Route: 042
     Dates: start: 20170810

REACTIONS (2)
  - Death [Fatal]
  - Headache [Unknown]

NARRATIVE: CASE EVENT DATE: 20180501
